FAERS Safety Report 7704815-3 (Version None)
Quarter: 2011Q3

REPORT INFORMATION
  Report Type: 
  Country: None (occurrence: None)
  Receive Date: 20110823
  Receipt Date: 20110816
  Transmission Date: 20111222
  Serious: Yes (Other)
  Sender: FDA-Public Use
  Company Number: GB-B.I. PHARMACEUTICALS,INC./RIDGEFIELD-2011-UK-00673UK

PATIENT
  Age: 12 Year
  Sex: Male
  Weight: 50.4 kg

DRUGS (2)
  1. ATENOLOL [Concomitant]
     Dosage: 100 MG
     Route: 048
  2. CLONIDINE [Suspect]
     Dosage: 50 MCG
     Route: 048
     Dates: start: 20110317, end: 20110421

REACTIONS (6)
  - INAPPROPRIATE AFFECT [None]
  - SEDATION [None]
  - AUTONOMIC NERVOUS SYSTEM IMBALANCE [None]
  - PYREXIA [None]
  - TACHYCARDIA [None]
  - VOMITING [None]
